FAERS Safety Report 6445817-7 (Version None)
Quarter: 2009Q4

REPORT INFORMATION
  Report Type: 
  Country: None (occurrence: None)
  Receive Date: 20091119
  Receipt Date: 20091109
  Transmission Date: 20100525
  Serious: Yes (Other)
  Sender: FDA-Public Use
  Company Number: US-BIOGENIDEC-2009BI024635

PATIENT
  Age: 48 Year
  Sex: Male
  Weight: 88 kg

DRUGS (11)
  1. AVONEX [Suspect]
     Indication: MULTIPLE SCLEROSIS
     Route: 030
     Dates: start: 20080418, end: 20090710
  2. KEPPRA [Concomitant]
     Indication: EPILEPSY
     Route: 048
     Dates: start: 20080501, end: 20081101
  3. KEPPRA [Concomitant]
     Indication: COMPLEX PARTIAL SEIZURES
     Route: 048
     Dates: start: 20080501, end: 20081101
  4. KEPPRA [Concomitant]
     Route: 048
     Dates: start: 20081101, end: 20090201
  5. KEPPRA [Concomitant]
     Route: 048
     Dates: start: 20081101, end: 20090201
  6. KEPPRA [Concomitant]
     Route: 048
     Dates: start: 20090201, end: 20090501
  7. KEPPRA [Concomitant]
     Route: 048
     Dates: start: 20090201, end: 20090501
  8. KEPPRA [Concomitant]
     Route: 048
     Dates: start: 20090511
  9. KEPPRA [Concomitant]
     Route: 048
     Dates: start: 20090511
  10. VITAMINS [Concomitant]
  11. SAW PALMETTO [Concomitant]

REACTIONS (3)
  - COMPLEX PARTIAL SEIZURES [None]
  - EPILEPSY [None]
  - MULTIPLE SCLEROSIS RELAPSE [None]
